FAERS Safety Report 8548380-X (Version None)
Quarter: 2012Q3

REPORT INFORMATION
  Report Type: 
  Country: None (occurrence: None)
  Receive Date: 20120730
  Receipt Date: 20120720
  Transmission Date: 20120928
  Serious: Yes (Hospitalization, Congenital Anomaly)
  Sender: FDA-Public Use
  Company Number: US-JNJFOC-20120516348

PATIENT
  Sex: Female

DRUGS (4)
  1. NEURONTIN [Suspect]
     Indication: FOETAL EXPOSURE DURING PREGNANCY
     Route: 064
  2. TOPAMAX [Suspect]
     Indication: FOETAL EXPOSURE DURING PREGNANCY
     Route: 064
  3. VITAMIN [Concomitant]
     Indication: FOETAL EXPOSURE DURING PREGNANCY
     Route: 064
  4. PHENOBARBITAL TAB [Suspect]
     Indication: FOETAL EXPOSURE DURING PREGNANCY
     Route: 064

REACTIONS (9)
  - SMALL FOR DATES BABY [None]
  - HYDRONEPHROSIS [None]
  - HEART DISEASE CONGENITAL [None]
  - CLEFT LIP AND PALATE [None]
  - PREMATURE BABY [None]
  - HYPERKALAEMIA [None]
  - HYPERBILIRUBINAEMIA [None]
  - AUTISM SPECTRUM DISORDER [None]
  - OTITIS MEDIA CHRONIC [None]
